FAERS Safety Report 18490079 (Version 1)
Quarter: 2020Q4

REPORT INFORMATION
  Report Type: Spontaneous
  Country: US (occurrence: US)
  Receive Date: 20201111
  Receipt Date: 20201111
  Transmission Date: 20210114
  Serious: No
  Sender: FDA-Public Use
  Company Number: US-DRREDDYS-USA/USA/20/0128580

PATIENT
  Age: 58 Year
  Sex: Female
  Weight: 60.75 kg

DRUGS (1)
  1. NICOTINE. [Suspect]
     Active Substance: NICOTINE
     Indication: EX-TOBACCO USER
     Dates: start: 20201025

REACTIONS (4)
  - Application site pain [Unknown]
  - Underdose [Unknown]
  - Product administered at inappropriate site [Unknown]
  - Application site erythema [Unknown]
